FAERS Safety Report 4360971-9 (Version None)
Quarter: 2004Q2

REPORT INFORMATION
  Report Type: 
  Country: None (occurrence: None)
  Receive Date: 20040519
  Receipt Date: 20040519
  Transmission Date: 20050107
  Serious: Yes (Other)
  Sender: FDA-Public Use
  Company Number: None

PATIENT
  Age: 23 Year
  Sex: Female
  Weight: 63.5036 kg

DRUGS (1)
  1. DOXYCYCLINE [Suspect]
     Dosage: 100 MX 1XDAY PO
     Route: 048
     Dates: start: 20040323, end: 20040518

REACTIONS (3)
  - ACNE CYSTIC [None]
  - DRUG INEFFECTIVE [None]
  - PHARMACEUTICAL PRODUCT COMPLAINT [None]
